FAERS Safety Report 10559218 (Version 1)
Quarter: 2014Q3

REPORT INFORMATION
  Report Type: Spontaneous
  Country: US (occurrence: None)
  Receive Date: 20140801
  Receipt Date: 20140801
  Transmission Date: 20150326
  Serious: No
  Sender: FDA-Public Use
  Company Number: US-BIOTEST-T 260/14

PATIENT
  Age: 63 Year
  Sex: Female

DRUGS (1)
  1. BIVIGAM [Suspect]
     Active Substance: HUMAN IMMUNOGLOBULIN G
     Indication: IMMUNODEFICIENCY COMMON VARIABLE
     Route: 041

REACTIONS (1)
  - Flank pain [None]

NARRATIVE: CASE EVENT DATE: 20131021
